FAERS Safety Report 20336009 (Version 1)
Quarter: 2022Q1

REPORT INFORMATION
  Report Type: Spontaneous
  Country: US (occurrence: None)
  Receive Date: 20220113
  Receipt Date: 20220113
  Transmission Date: 20220423
  Serious: Yes (Hospitalization)
  Sender: FDA-Public Use
  Company Number: None

PATIENT
  Sex: Female

DRUGS (3)
  1. GLATIRAMER [Suspect]
     Active Substance: GLATIRAMER
     Indication: Multiple sclerosis
     Dosage: OTHER FREQUENCY : 40 MG/ML;?
     Route: 058
     Dates: start: 20191231
  2. DALFAMPRIDINE ER [Concomitant]
  3. FLOMAX [Concomitant]

REACTIONS (1)
  - Surgery [None]
